FAERS Safety Report 8137421-X (Version None)
Quarter: 2012Q1

REPORT INFORMATION
  Report Type: 
  Country: None (occurrence: None)
  Receive Date: 20120215
  Receipt Date: 20120209
  Transmission Date: 20120608
  Serious: Yes (Other)
  Sender: FDA-Public Use
  Company Number: IE-US-EMD SERONO, INC.-7112581

PATIENT
  Sex: Male

DRUGS (2)
  1. REBIF [Suspect]
     Indication: RELAPSING-REMITTING MULTIPLE SCLEROSIS
     Route: 058
     Dates: start: 20010525
  2. REBIF [Suspect]
     Route: 058
     Dates: start: 20060701

REACTIONS (7)
  - GASTRIC ULCER [None]
  - BODY TEMPERATURE INCREASED [None]
  - ABDOMINAL DISTENSION [None]
  - SOMNOLENCE [None]
  - TREATMENT NONCOMPLIANCE [None]
  - ABDOMINAL PAIN LOWER [None]
  - INFLUENZA LIKE ILLNESS [None]
